FAERS Safety Report 8903279 (Version 1)
Quarter: 2020Q3

REPORT INFORMATION
  Report Type: Report from Study
  Country: NL (occurrence: NL)
  Receive Date: 20121113
  Receipt Date: 20121113
  Transmission Date: 20201104
  Serious: Yes (Hospitalization)
  Sender: FDA-Public Use
  Company Number: NL-ROCHE-1153076

PATIENT
  Age: 76 Year
  Sex: Female
  Weight: 65.5 kg

DRUGS (1)
  1. IBANDRONIC ACID. [Suspect]
     Active Substance: IBANDRONIC ACID
     Indication: BREAST CANCER
     Dosage: MOST RECENT DOSE PRIOR TO EVENT : 16/AUG/2012
     Route: 065
     Dates: start: 20111203

REACTIONS (1)
  - Pulmonary embolism [Recovered/Resolved]

NARRATIVE: CASE EVENT DATE: 20120802
